FAERS Safety Report 26175279 (Version 1)
Quarter: 2025Q4

REPORT INFORMATION
  Report Type: Spontaneous
  Country: US (occurrence: None)
  Receive Date: 20251218
  Receipt Date: 20251218
  Transmission Date: 20260118
  Serious: Yes (Hospitalization)
  Sender: FDA-CTU
  Company Number: None

PATIENT
  Sex: Male

DRUGS (10)
  1. BRAFTOVI [Suspect]
     Active Substance: ENCORAFENIB
     Indication: Malignant melanoma
     Route: 048
     Dates: start: 20251201
  2. MEKTOVI [Concomitant]
     Active Substance: BINIMETINIB
  3. BRAFT0VI [Concomitant]
  4. BRAFT0VI CAP 75MG [Concomitant]
  5. FAM0TIDINE [Concomitant]
  6. L0PERAMIDE CAP2MG [Concomitant]
  7. MEKTOVI [Concomitant]
     Active Substance: BINIMETINIB
  8. MEKTOVI [Concomitant]
     Active Substance: BINIMETINIB
  9. 0NDANSETR0N TAB SMG 0DT [Concomitant]
  10. UREA POW [Concomitant]

REACTIONS (3)
  - Mental status changes [None]
  - Toxicity to various agents [None]
  - Disease progression [None]
